FAERS Safety Report 18790255 (Version 1)
Quarter: 2021Q1

REPORT INFORMATION
  Report Type: Spontaneous
  Country: US (occurrence: US)
  Receive Date: 20210125
  Receipt Date: 20210125
  Transmission Date: 20210419
  Serious: No
  Sender: FDA-Public Use
  Company Number: US-ACORDA-ACO_167539_2021

PATIENT
  Sex: Female
  Weight: 79.5 kg

DRUGS (1)
  1. AMPYRA [Suspect]
     Active Substance: DALFAMPRIDINE
     Indication: GAIT DISTURBANCE
     Route: 048

REACTIONS (2)
  - Disturbance in attention [Unknown]
  - Fatigue [Unknown]
